FAERS Safety Report 9536115 (Version 1)
Quarter: 2013Q2

REPORT INFORMATION
  Report Type: Spontaneous
  Country: US (occurrence: None)
  Receive Date: 20130422
  Receipt Date: 20130422
  Transmission Date: 20140414
  Serious: Yes (Hospitalization, Other)
  Sender: FDA-Public Use
  Company Number: FK201300887

PATIENT
  Age: 27 Year
  Sex: Male
  Weight: 52 kg

DRUGS (1)
  1. CANCICLOVIR FOR INJECTION, USP (GANCICLOVIR FOR [Suspect]
     Indication: CYTOMEGALOVIRUS INFECTION
     Dosage: 260 MG, 1 IN 12 HR, INTRAVENOUS
     Route: 042
     Dates: start: 20130220, end: 20130306

REACTIONS (2)
  - Viral load increased [None]
  - Drug ineffective [None]
